FAERS Safety Report 8522659 (Version 3)
Quarter: 2012Q4

REPORT INFORMATION
  Report Type: 
  Country: US (occurrence: US)
  Receive Date: 20120419
  Receipt Date: 20121205
  Transmission Date: 20130627
  Serious: Yes (Hospitalization)
  Sender: FDA-Public Use
  Company Number: US-GLAXOSMITHKLINE-A0934553A

PATIENT
  Age: 74 Year
  Sex: Female
  Weight: 70.9 kg

DRUGS (1)
  1. AVANDIA [Suspect]
     Indication: DIABETES MELLITUS
     Dosage: 2MG Per day
     Route: 048
     Dates: start: 20050408, end: 20050703

REACTIONS (3)
  - Cardiac failure congestive [Not Recovered/Not Resolved]
  - Catheterisation cardiac [Unknown]
  - Oxygen supplementation [Unknown]
